FAERS Safety Report 8988059 (Version 1)
Quarter: 2012Q4

REPORT INFORMATION
  Report Type: 
  Country: US (occurrence: US)
  Receive Date: 20121227
  Receipt Date: 20121227
  Transmission Date: 20130627
  Serious: No
  Sender: FDA-Public Use
  Company Number: US-PFIZER INC-2012330451

PATIENT
  Age: 69 Year
  Sex: Female
  Weight: 90.7 kg

DRUGS (5)
  1. LYRICA [Suspect]
     Indication: FIBROMYALGIA
     Dosage: 50 mg, 2x/day
     Route: 048
     Dates: start: 20121210
  2. VALSARTAN [Concomitant]
     Indication: BLOOD PRESSURE HIGH
     Dosage: 80 mg, 1x/day
  3. HYDROCHLOROTHIAZIDE/VALSARTAN [Concomitant]
     Indication: BLOOD PRESSURE HIGH
     Dosage: UNK, 1x/day
  4. SIMVASTATIN [Concomitant]
     Indication: HIGH CHOLESTEROL
     Dosage: 40 mg, 1x/day
  5. CARVEDILOL [Concomitant]
     Dosage: 3.125 mg, 2x/day

REACTIONS (2)
  - Oedema peripheral [Not Recovered/Not Resolved]
  - Joint swelling [Not Recovered/Not Resolved]
